FAERS Safety Report 5777175-5 (Version None)
Quarter: 2008Q2

REPORT INFORMATION
  Report Type: 
  Country: None (occurrence: None)
  Receive Date: 20080618
  Receipt Date: 20080613
  Transmission Date: 20081010
  Serious: Yes (Other)
  Sender: FDA-Public Use
  Company Number: GB-ROCHE-570501

PATIENT
  Sex: Male

DRUGS (1)
  1. VESANOID [Suspect]
     Indication: DRUG USE FOR UNKNOWN INDICATION
     Dosage: 40MG IN THE MORNING, 50MG IN THE EVENING.
     Route: 065

REACTIONS (1)
  - SEPSIS [None]
